FAERS Safety Report 25049203 (Version 1)
Quarter: 2025Q1

REPORT INFORMATION
  Report Type: Spontaneous
  Country: US (occurrence: US)
  Receive Date: 20250307
  Receipt Date: 20250307
  Transmission Date: 20250409
  Serious: No
  Sender: Sanaluz
  Company Number: US-SANALUZ LLC-2024CER000003

PATIENT

DRUGS (1)
  1. PYRIMETHAMINE [Suspect]
     Active Substance: PYRIMETHAMINE
     Indication: Product used for unknown indication
     Route: 048

REACTIONS (2)
  - Adverse drug reaction [Unknown]
  - Product quality issue [Unknown]
